FAERS Safety Report 9345205 (Version 2)
Quarter: 2013Q2

REPORT INFORMATION
  Report Type: Spontaneous
  Country: TR (occurrence: TR)
  Receive Date: 20130612
  Receipt Date: 20130612
  Transmission Date: 20140414
  Serious: Yes (Other)
  Sender: FDA-Public Use
  Company Number: TR-MERCK-1305TUR010468

PATIENT
  Age: 45 Year
  Sex: Male
  Weight: 65 kg

DRUGS (3)
  1. COSAAR [Suspect]
     Indication: HYPERTENSION
     Dosage: 50 MG, QD
     Route: 048
     Dates: start: 2009
  2. COSAAR [Suspect]
     Dosage: 50 MG, BID
     Route: 048
     Dates: start: 20130511, end: 20130512
  3. COSAAR [Suspect]
     Dosage: 50 MG, UNK
     Route: 048
     Dates: start: 20130513

REACTIONS (3)
  - Blood pressure inadequately controlled [Recovered/Resolved]
  - Drug ineffective [Unknown]
  - Product quality issue [Unknown]
